FAERS Safety Report 7064300-1 (Version None)
Quarter: 2010Q4

REPORT INFORMATION
  Report Type: 
  Country: None (occurrence: None)
  Receive Date: 20101027
  Receipt Date: 20101018
  Transmission Date: 20110411
  Serious: Yes (Other)
  Sender: FDA-Public Use
  Company Number: FR-JNJFOC-20100906250

PATIENT
  Age: 24 Year
  Sex: Female

DRUGS (6)
  1. REMICADE [Suspect]
     Indication: CROHN'S DISEASE
     Dosage: 5 INFUSIONS RECEIVED THROUGH 27-JAN-2010
     Route: 042
  2. REMICADE [Suspect]
     Dosage: 5 INFUSIONS RECEIVED THROUGH 27-JAN-2010
     Route: 042
  3. REMICADE [Suspect]
     Dosage: 5 INFUSIONS RECEIVED THROUGH 27-JAN-2010
     Route: 042
  4. REMICADE [Suspect]
     Dosage: 5 INFUSIONS RECEIVED THROUGH 27-JAN-2010
     Route: 042
  5. REMICADE [Suspect]
     Dosage: 5 INFUSIONS RECEIVED THROUGH 27-JAN-2010
     Route: 042
  6. REMICADE [Suspect]
     Route: 042

REACTIONS (2)
  - DRUG EXPOSURE DURING PREGNANCY [None]
  - IN VITRO FERTILISATION [None]
